FAERS Safety Report 9067613 (Version 1)
Quarter: 2013Q1

REPORT INFORMATION
  Report Type: Spontaneous
  Country: US (occurrence: US)
  Receive Date: 20130128
  Receipt Date: 20130128
  Transmission Date: 20140127
  Serious: Yes (Other)
  Sender: FDA-Public Use
  Company Number: US-PFIZER INC-2013035011

PATIENT
  Age: 74 Year
  Sex: Female
  Weight: 50.34 kg

DRUGS (2)
  1. LYRICA [Suspect]
     Indication: NEURALGIA
     Dosage: 25 MG, 1X/DAY
     Route: 048
     Dates: start: 20130125
  2. LYRICA [Suspect]
     Indication: DIABETIC NEUROPATHY

REACTIONS (3)
  - Activities of daily living impaired [Not Recovered/Not Resolved]
  - Neuralgia [Not Recovered/Not Resolved]
  - Chest discomfort [Not Recovered/Not Resolved]
